FAERS Safety Report 6248755-8 (Version None)
Quarter: 2009Q2

REPORT INFORMATION
  Report Type: 
  Country: None (occurrence: None)
  Receive Date: 20090629
  Receipt Date: 20090624
  Transmission Date: 20091009
  Serious: Yes (Death, Hospitalization)
  Sender: FDA-Public Use
  Company Number: PHHY2009BR25515

PATIENT
  Sex: Female

DRUGS (3)
  1. DIOVAN [Suspect]
     Indication: HYPERTENSION
     Dosage: 1 DF (80 MG) A DAY
     Route: 048
     Dates: start: 19990101
  2. TAMARINE [Concomitant]
     Indication: CONSTIPATION
  3. PSYLLIUM HYDROPHILIC MUCILLOID [Concomitant]
     Indication: CONSTIPATION

REACTIONS (3)
  - DIARRHOEA INFECTIOUS [None]
  - MULTI-ORGAN FAILURE [None]
  - RENAL FAILURE [None]
